FAERS Safety Report 23751702 (Version 2)
Quarter: 2024Q2

REPORT INFORMATION
  Report Type: Spontaneous
  Country: US (occurrence: US)
  Receive Date: 20240417
  Receipt Date: 20240516
  Transmission Date: 20240716
  Serious: Yes (Other)
  Sender: FDA-Public Use
  Company Number: US-009507513-2404USA007657

PATIENT
  Age: 73 Year
  Sex: Female

DRUGS (2)
  1. KEYTRUDA [Suspect]
     Active Substance: PEMBROLIZUMAB
     Indication: Lung cancer metastatic
     Dosage: UNK UNK, Q3W
     Route: 042
     Dates: start: 202310, end: 202403
  2. METOPROLOL [Concomitant]
     Active Substance: METOPROLOL
     Dosage: UNK

REACTIONS (6)
  - Atrial fibrillation [Unknown]
  - Blister [Recovering/Resolving]
  - Oral mucosal blistering [Recovering/Resolving]
  - Nasal mucosal blistering [Recovering/Resolving]
  - Onychomadesis [Recovering/Resolving]
  - Dysphonia [Unknown]

NARRATIVE: CASE EVENT DATE: 20240301
